FAERS Safety Report 6494987-3 (Version None)
Quarter: 2009Q4

REPORT INFORMATION
  Report Type: 
  Country: None (occurrence: None)
  Receive Date: 20091214
  Receipt Date: 20090417
  Transmission Date: 20100525
  Serious: No
  Sender: FDA-Public Use
  Company Number: US-BRISTOL-MYERS SQUIBB COMPANY-14591804

PATIENT
  Age: 61 Year
  Sex: Male

DRUGS (4)
  1. ABILIFY [Suspect]
     Indication: DEPRESSION
     Dates: start: 20080901
  2. ZYPREXA [Suspect]
  3. CYMBALTA [Suspect]
  4. KLONOPIN [Suspect]

REACTIONS (2)
  - DYSARTHRIA [None]
  - DYSKINESIA [None]
